FAERS Safety Report 5883761-4 (Version None)
Quarter: 2008Q3

REPORT INFORMATION
  Report Type: 
  Country: None (occurrence: None)
  Receive Date: 20080915
  Receipt Date: 20080905
  Transmission Date: 20090109
  Serious: Yes (Other)
  Sender: FDA-Public Use
  Company Number: A0680896A

PATIENT
  Age: 60 Year
  Sex: Female

DRUGS (18)
  1. FLOVENT [Suspect]
     Indication: ASTHMA
     Dosage: 1PUFF TWICE PER DAY
     Route: 055
  2. ADVAIR DISKUS 100/50 [Suspect]
     Indication: ASTHMA
     Route: 055
  3. NEXIUM [Concomitant]
  4. POTASSIUM CHLORIDE [Concomitant]
  5. LEVOXYL [Concomitant]
  6. LASIX [Concomitant]
  7. FLEXERIL [Concomitant]
  8. XANAX [Concomitant]
  9. COZAAR [Concomitant]
  10. ALBUTEROL [Concomitant]
  11. HYDROCHLOROTHIAZIDE [Concomitant]
  12. MULTI-VITAMIN [Concomitant]
  13. ASPIRIN [Concomitant]
  14. CALCIUM CITRATE [Concomitant]
  15. VITAMIN D [Concomitant]
  16. ASCORBIC ACID [Concomitant]
  17. VITAMIN E [Concomitant]
  18. UNKNOWN MEDICATION [Concomitant]

REACTIONS (13)
  - ASTHMA [None]
  - CHEST DISCOMFORT [None]
  - COUGH [None]
  - DIZZINESS [None]
  - DRUG INEFFECTIVE [None]
  - HYPERVENTILATION [None]
  - MALAISE [None]
  - PALPITATIONS [None]
  - PHARMACEUTICAL PRODUCT COMPLAINT [None]
  - POOR QUALITY SLEEP [None]
  - PULMONARY FUNCTION TEST DECREASED [None]
  - SUFFOCATION FEELING [None]
  - TEMPERATURE REGULATION DISORDER [None]
